FAERS Safety Report 12065810 (Version 1)
Quarter: 2016Q1

REPORT INFORMATION
  Report Type: Spontaneous
  Country: US (occurrence: US)
  Receive Date: 20160211
  Receipt Date: 20160211
  Transmission Date: 20160526
  Serious: No
  Sender: FDA-Public Use
  Company Number: US-BAYER-2016-024517

PATIENT
  Sex: Female

DRUGS (2)
  1. ALKA-SELTZER ORIGINAL [Concomitant]
     Active Substance: ANHYDROUS CITRIC ACID\ASPIRIN\SODIUM BICARBONATE
     Dosage: ON A REGULAR BASIS
  2. ALEVE [Suspect]
     Active Substance: NAPROXEN SODIUM
     Indication: MIGRAINE
     Dosage: ALL THE TIME

REACTIONS (2)
  - Product use issue [None]
  - Off label use [None]
